FAERS Safety Report 6033371-3 (Version None)
Quarter: 2009Q1

REPORT INFORMATION
  Report Type: 
  Country: None (occurrence: None)
  Receive Date: 20090109
  Receipt Date: 20081230
  Transmission Date: 20090719
  Serious: Yes (Other)
  Sender: FDA-Public Use
  Company Number: CH-WYE-H07419308

PATIENT
  Age: 1 Day

DRUGS (6)
  1. ZURCAL [Suspect]
     Dosage: UNKNOWN DOSE ^ON DEMAND^
     Route: 064
  2. SAROTEN [Suspect]
     Indication: DEPRESSION
     Route: 064
     Dates: end: 20080101
  3. SAROTEN [Suspect]
     Dosage: TAPERING OFF
     Route: 064
     Dates: start: 20080101, end: 20080601
  4. TEMESTA [Suspect]
     Indication: DEPRESSION
     Route: 064
  5. TEMESTA [Suspect]
     Dosage: 1 TO 1.5 MG DAILY
     Route: 064
  6. CONCOR [Suspect]
     Indication: HYPERTENSION
     Route: 064

REACTIONS (2)
  - DRUG EXPOSURE DURING PREGNANCY [None]
  - FOETAL GROWTH RETARDATION [None]
